FAERS Safety Report 8271889-3 (Version None)
Quarter: 2012Q2

REPORT INFORMATION
  Report Type: 
  Country: None (occurrence: None)
  Receive Date: 20120410
  Receipt Date: 20120323
  Transmission Date: 20120825
  Serious: No
  Sender: FDA-Public Use
  Company Number: DE-ALEXION-A201101058

PATIENT
  Sex: Female

DRUGS (4)
  1. SOLIRIS [Suspect]
     Dosage: 1200 MG, SINGLE
     Route: 042
     Dates: start: 20110708, end: 20110708
  2. TORSEMIDE [Concomitant]
     Indication: OEDEMA
     Dosage: 5 MG, QD
  3. SOLIRIS [Suspect]
     Indication: HAEMOLYTIC URAEMIC SYNDROME
     Dosage: 900 MG, QW
     Route: 042
     Dates: start: 20110609, end: 20110630
  4. PHENYTOIN [Concomitant]
     Indication: CONVULSION PROPHYLAXIS
     Dosage: 100 MG, QID

REACTIONS (1)
  - RETINAL HAEMORRHAGE [None]
